FAERS Safety Report 6862716-7 (Version None)
Quarter: 2010Q3

REPORT INFORMATION
  Report Type: 
  Country: None (occurrence: None)
  Receive Date: 20100721
  Receipt Date: 20100713
  Transmission Date: 20110219
  Serious: Yes (Hospitalization)
  Sender: FDA-Public Use
  Company Number: BG-ROCHE-715166

PATIENT
  Sex: Female
  Weight: 74 kg

DRUGS (9)
  1. BEVACIZUMAB [Suspect]
     Dosage: DOSE LEVEL: 15 MG/KG, FORM: VIAL, LAST DOSE PRIOR TO SAE: 23 JUN 2010
     Route: 042
     Dates: start: 20100602, end: 20100713
  2. TRASTUZUMAB [Suspect]
     Dosage: LOADING DOSE
     Route: 042
  3. TRASTUZUMAB [Suspect]
     Dosage: DOSE: 6 MG/KG, LAST DOSE: 23 JUN 2010, FORM: VIALS
     Route: 042
     Dates: start: 20100602
  4. CARBOPLATIN [Suspect]
     Dosage: LAST DOSE: 23 JUN 2010, DOSE: 5 AUC, FORM: VIAL
     Route: 042
     Dates: start: 20100602
  5. DOCETAXEL [Suspect]
     Dosage: DOSE: 60 MG/M2, FORM: VIALS, LAST DOSE: 23 JUN 2010
     Route: 042
     Dates: start: 20100602
  6. ENALAPRIL MALEATE [Concomitant]
     Dates: start: 20070901
  7. AMOKSIKLAV [Concomitant]
     Dates: start: 20100629, end: 20100706
  8. CERUCAL [Concomitant]
     Dates: start: 20100629, end: 20100706
  9. VITAMIN A [Concomitant]
     Dates: start: 20100629, end: 20100706

REACTIONS (1)
  - DUODENAL ULCER [None]
